FAERS Safety Report 10043750 (Version 1)
Quarter: 2014Q1

REPORT INFORMATION
  Report Type: Spontaneous
  Country: US (occurrence: None)
  Receive Date: 20140327
  Receipt Date: 20140327
  Transmission Date: 20141002
  Serious: Yes (Life-Threatening)
  Sender: FDA-Public Use
  Company Number: None

PATIENT
  Age: 95 Year
  Sex: Male
  Weight: 105.1 kg

DRUGS (1)
  1. WARFARIN [Suspect]
     Indication: ATRIAL FIBRILLATION
     Dosage: MG
     Route: 048
     Dates: start: 20140317, end: 20140321

REACTIONS (4)
  - Gastrointestinal haemorrhage [None]
  - International normalised ratio increased [None]
  - Treatment noncompliance [None]
  - Haematochezia [None]
